FAERS Safety Report 16492895 (Version 1)
Quarter: 2019Q2

REPORT INFORMATION
  Report Type: Report from Study
  Country: DE (occurrence: DE)
  Receive Date: 20190628
  Receipt Date: 20190628
  Transmission Date: 20190711
  Serious: Yes (Hospitalization, Other)
  Sender: FDA-Public Use
  Company Number: DE-TEVA-2019-DE-1027980

PATIENT
  Age: 71 Year
  Sex: Male

DRUGS (1)
  1. COPAXONE [Suspect]
     Active Substance: GLATIRAMER ACETATE
     Indication: MULTIPLE SCLEROSIS
     Route: 058
     Dates: start: 20120417

REACTIONS (4)
  - Stevens-Johnson syndrome [Recovered/Resolved]
  - Pneumonia [Recovered/Resolved]
  - Blister [Recovering/Resolving]
  - Immune system disorder [Unknown]

NARRATIVE: CASE EVENT DATE: 201811
